FAERS Safety Report 7308711-5 (Version None)
Quarter: 2011Q1

REPORT INFORMATION
  Report Type: 
  Country: None (occurrence: None)
  Receive Date: 20110223
  Receipt Date: 20110210
  Transmission Date: 20110831
  Serious: Yes (Hospitalization, Congenital Anomaly)
  Sender: FDA-Public Use
  Company Number: PHHY2011NL11141

PATIENT
  Sex: Male
  Weight: 3 kg

DRUGS (1)
  1. GLEEVEC [Suspect]
     Dosage: MATERNAL DOSE: 100 MG
     Route: 064

REACTIONS (3)
  - RENAL DYSPLASIA [None]
  - RENAL APLASIA [None]
  - CONGENITAL HYDRONEPHROSIS [None]
